FAERS Safety Report 7429579-2 (Version None)
Quarter: 2011Q2

REPORT INFORMATION
  Report Type: 
  Country: None (occurrence: None)
  Receive Date: 20110421
  Receipt Date: 20110419
  Transmission Date: 20111010
  Serious: Yes (Congenital Anomaly)
  Sender: FDA-Public Use
  Company Number: A0923821A

PATIENT

DRUGS (1)
  1. PAXIL [Suspect]
     Dosage: 20MG UNKNOWN
     Route: 064

REACTIONS (6)
  - CARDIAC FAILURE CONGESTIVE [None]
  - LUNG DISORDER [None]
  - PNEUMONIA [None]
  - VENTRICULAR SEPTAL DEFECT [None]
  - HEART DISEASE CONGENITAL [None]
  - DRUG EXPOSURE DURING PREGNANCY [None]
